FAERS Safety Report 5839620-6 (Version None)
Quarter: 2008Q3

REPORT INFORMATION
  Report Type: 
  Country: None (occurrence: None)
  Receive Date: 20080811
  Receipt Date: 20080731
  Transmission Date: 20090109
  Serious: Yes (Other)
  Sender: FDA-Public Use
  Company Number: US-JNJFOC-20080800605

PATIENT
  Sex: Female
  Weight: 48.54 kg

DRUGS (4)
  1. LEVAQUIN [Suspect]
     Indication: NEPHROLITHIASIS
     Route: 048
     Dates: start: 20080711, end: 20080716
  2. LEVAQUIN [Suspect]
     Indication: URINARY TRACT INFECTION
     Route: 048
     Dates: start: 20080711, end: 20080716
  3. ACTONEL [Concomitant]
     Indication: OSTEOPENIA
     Route: 065
  4. CALCIUM [Concomitant]
     Indication: BONE DISORDER
     Route: 065

REACTIONS (8)
  - ARRHYTHMIA [None]
  - DRY MOUTH [None]
  - DYSGEUSIA [None]
  - HYPOTHYROIDISM [None]
  - INSOMNIA [None]
  - JOINT SWELLING [None]
  - PHOTOSENSITIVITY REACTION [None]
  - RASH [None]
